FAERS Safety Report 5367394-4 (Version None)
Quarter: 2007Q2

REPORT INFORMATION
  Report Type: 
  Country: None (occurrence: None)
  Receive Date: 20070622
  Receipt Date: 20061127
  Transmission Date: 20071010
  Serious: No
  Sender: FDA-Public Use
  Company Number: US-ASTRAZENECA-2006UW19661

PATIENT
  Age: 6 Year
  Sex: Male
  Weight: 24.9 kg

DRUGS (4)
  1. PULMICORT TH [Suspect]
     Indication: ASTHMA
     Route: 055
     Dates: start: 20060301, end: 20060801
  2. PULMICORT TH [Suspect]
     Route: 055
     Dates: start: 20060901, end: 20060925
  3. M.V.I. [Concomitant]
  4. ALBUTEROL [Concomitant]
     Dosage: BUT NEVER USED IN 2005

REACTIONS (4)
  - EXCESSIVE EYE BLINKING [None]
  - EYE ROLLING [None]
  - GRIMACING [None]
  - TIC [None]
